FAERS Safety Report 21470651 (Version 5)
Quarter: 2023Q1

REPORT INFORMATION
  Report Type: Report from Study
  Country: CN (occurrence: CN)
  Receive Date: 20221018
  Receipt Date: 20230217
  Transmission Date: 20230417
  Serious: Yes (Death, Life-Threatening, Other)
  Sender: FDA-Public Use
  Company Number: CN-BoehringerIngelheim-2022-BI-170753

PATIENT
  Age: 80 Year
  Sex: Female
  Weight: 70 kg

DRUGS (6)
  1. ALTEPLASE [Suspect]
     Active Substance: ALTEPLASE
     Indication: Ischaemic stroke
     Dosage: START TIME 12:18, FORMULATION: CONCENTRATED
     Route: 042
     Dates: start: 20220513, end: 20220513
  2. TENECTEPLASE [Suspect]
     Active Substance: TENECTEPLASE
     Indication: Ischaemic stroke
     Route: 042
  3. BUTORPHANOL TARTRATE [Concomitant]
     Active Substance: BUTORPHANOL TARTRATE
     Indication: Analgesic therapy
     Dosage: ROUTE: MICROPUMP
     Dates: start: 20220514, end: 20220514
  4. PROPOFOL [Concomitant]
     Active Substance: PROPOFOL
     Indication: Sedation
     Dosage: ROUTE: MICROPUMP
     Dates: start: 20220514, end: 20220514
  5. PIPERACILLIN AND TAZOBACTAM [Concomitant]
     Active Substance: PIPERACILLIN SODIUM\TAZOBACTAM SODIUM
     Indication: Anti-infective therapy
     Dosage: IVGTT
     Route: 042
     Dates: start: 20220515, end: 20220523
  6. OMEPRAZOLE SODIUM [Concomitant]
     Active Substance: OMEPRAZOLE SODIUM
     Indication: Stress ulcer
     Dosage: IVGTT
     Route: 042
     Dates: start: 20220513, end: 20220513

REACTIONS (7)
  - Brain herniation [Fatal]
  - Cerebral haemorrhage [Unknown]
  - Carotid artery thrombosis [Unknown]
  - Brain oedema [Unknown]
  - Brain contusion [Unknown]
  - Coma [Unknown]
  - Pneumonia aspiration [Unknown]

NARRATIVE: CASE EVENT DATE: 20220514
